FAERS Safety Report 11839877 (Version 1)
Quarter: 2015Q4

REPORT INFORMATION
  Report Type: Spontaneous
  Country: FR (occurrence: FR)
  Receive Date: 20151216
  Receipt Date: 20151216
  Transmission Date: 20160305
  Serious: Yes (Congenital Anomaly)
  Sender: FDA-Public Use
  Company Number: FR-SA-2015SA205337

PATIENT
  Age: 2 Month
  Sex: Female
  Weight: 1.53 kg

DRUGS (3)
  1. CLOMID [Suspect]
     Active Substance: CLOMIPHENE CITRATE
     Indication: FOETAL EXPOSURE DURING PREGNANCY
     Route: 064
  2. DECAPEPTYL [Suspect]
     Active Substance: TRIPTORELIN ACETATE
     Indication: FOETAL EXPOSURE DURING PREGNANCY
     Route: 064
  3. MENOPUR [Suspect]
     Active Substance: FOLLICLE STIMULATING HORMONE BETA POLYPEPTIDE\LUTROPIN ALFA
     Indication: FOETAL EXPOSURE DURING PREGNANCY
     Route: 064

REACTIONS (2)
  - Encephalocele [Recovered/Resolved]
  - Foetal exposure during pregnancy [Unknown]

NARRATIVE: CASE EVENT DATE: 20130919
